FAERS Safety Report 5329697-9 (Version None)
Quarter: 2007Q2

REPORT INFORMATION
  Report Type: 
  Country: None (occurrence: None)
  Receive Date: 20070515
  Receipt Date: 20070504
  Transmission Date: 20071010
  Serious: Yes (Hospitalization)
  Sender: FDA-Public Use
  Company Number: GXKR2007JP04081

PATIENT
  Age: 67 Year
  Sex: Male
  Weight: 60 kg

DRUGS (2)
  1. RIBAVIRIN [Suspect]
     Indication: HEPATIC NEOPLASM
     Dosage: 800 MG, QD
  2. PEGINTERFERON ALFA-2B (PEGINTERFERON ALFA-2B) [Suspect]
     Dosage: 100 UG, QW

REACTIONS (8)
  - BURNING SENSATION [None]
  - CARDIOVASCULAR DISORDER [None]
  - DEEP VEIN THROMBOSIS [None]
  - ERYTHEMA [None]
  - HYPERCOAGULATION [None]
  - OEDEMA PERIPHERAL [None]
  - PAIN [None]
  - PLATELET COUNT INCREASED [None]
